FAERS Safety Report 17775952 (Version 5)
Quarter: 2021Q2

REPORT INFORMATION
  Report Type: Report from Study
  Country: US (occurrence: US)
  Receive Date: 20200513
  Receipt Date: 20210517
  Transmission Date: 20210716
  Serious: Yes (Hospitalization)
  Sender: FDA-Public Use
  Company Number: US-ACADIA PHARMACEUTICALS INC.-ACA-2019-012796

PATIENT
  Sex: Female
  Weight: 57 kg

DRUGS (46)
  1. NUPLAZID [Suspect]
     Active Substance: PIMAVANSERIN TARTRATE
     Dosage: 34 MG, QD
     Route: 048
     Dates: end: 202008
  2. CELEBREX [Concomitant]
     Active Substance: CELECOXIB
     Dosage: 200 MILLIGRAM
  3. ESTRACE [Concomitant]
     Active Substance: ESTRADIOL
     Dosage: 0.01% CREAM/APPL
  4. HYQVIA [Concomitant]
     Active Substance: HUMAN IMMUNOGLOBULIN G\HYALURONIDASE RECOMBINANT HUMAN
     Indication: PRIMARY IMMUNODEFICIENCY SYNDROME
     Dosage: 30 GRAM VIAL
     Route: 058
  5. ZANTAC [Concomitant]
     Active Substance: RANITIDINE HYDROCHLORIDE
     Dosage: 150 MILLIGRAM
  6. ESCITALOPRAM OXALATE. [Concomitant]
     Active Substance: ESCITALOPRAM OXALATE
     Dosage: 10 MILLIGRAM, QD
     Route: 048
     Dates: start: 20200313
  7. VOLTAREN [Concomitant]
     Active Substance: DICLOFENAC SODIUM
     Indication: PAIN
     Dosage: 1% GEL 2 GRAM TRANSDERMAL TID PRN, APPLY 2 G TO AFFECTED AREA
     Route: 062
     Dates: start: 20191022
  8. XEOMIN [Concomitant]
     Active Substance: INCOBOTULINUMTOXINA
     Dosage: 100 UNIT FOR SOLUTION 5 VIAL INTRAMUSCULAR Q 8
     Route: 030
     Dates: start: 20191212
  9. UBRELVY [Concomitant]
     Active Substance: UBROGEPANT
     Indication: MIGRAINE
     Dosage: 100 MILLIGRAM, MAY REPEAT IN 2 HRS AS NEEDED
     Route: 048
     Dates: start: 20200304
  10. MAGNESIUM GLYCINATE [Concomitant]
     Active Substance: MAGNESIUM GLYCINATE
     Dosage: 400 MILLIGRAM, QD
  11. ESTRACE [Concomitant]
     Active Substance: ESTRADIOL
     Dosage: 0.1 MG/GM CREAM VAGINAL DAILY
     Route: 067
  12. SYNTHROID [Concomitant]
     Active Substance: LEVOTHYROXINE SODIUM
     Dosage: 88 MCG QD
     Route: 048
  13. VALIUM [Concomitant]
     Active Substance: DIAZEPAM
     Dosage: 5 MILLIGRAM
  14. LORAZEPAM. [Concomitant]
     Active Substance: LORAZEPAM
     Indication: SLEEP DISORDER
     Dosage: ONE AND HALF TABLET ORAL AT BEDTIME A NEEDED
     Route: 048
     Dates: start: 20200313
  15. PROCHLORPERAZINE. [Concomitant]
     Active Substance: PROCHLORPERAZINE
     Dosage: 1 RECTAL EVERY 6 HOURS AS NEEDED FOR N/V
     Route: 054
     Dates: start: 20170512
  16. METHADONE HCL [Concomitant]
     Active Substance: METHADONE HYDROCHLORIDE
     Dosage: HALF TABLET DAILY
     Route: 048
  17. MIGRELIEF [Concomitant]
     Active Substance: DIETARY SUPPLEMENT
     Dosage: 200?180?50 MG TABLET TWO TIMES DAILY
     Route: 048
  18. NUPLAZID [Suspect]
     Active Substance: PIMAVANSERIN TARTRATE
     Indication: PARKINSON^S DISEASE
     Dosage: 34 MG, QD
     Route: 048
     Dates: start: 20200612
  19. ELMIRON [Concomitant]
     Active Substance: PENTOSAN POLYSULFATE SODIUM
     Dosage: 100 MILLIGRAM
  20. GRALISE [Concomitant]
     Active Substance: GABAPENTIN
     Dosage: 600 MILLIGRAM TABLET ER 24 H
  21. METOPROLOL SUCCINATE. [Concomitant]
     Active Substance: METOPROLOL SUCCINATE
  22. METOPROLOL TARTRATE. [Concomitant]
     Active Substance: METOPROLOL TARTRATE
     Dosage: 75 MILLIGRAM, QD
     Route: 048
  23. RISEDRONATE SODIUM. [Concomitant]
     Active Substance: RISEDRONATE SODIUM
     Dosage: 150 MILLIGRAM
  24. CANDESARTAN. [Concomitant]
     Active Substance: CANDESARTAN
     Dosage: 16 MILLIGRAM, QD
  25. ATIVAN [Concomitant]
     Active Substance: LORAZEPAM
     Dosage: 1 MILLIGRAM
  26. LEXAPRO [Concomitant]
     Active Substance: ESCITALOPRAM OXALATE
     Dosage: 10 MILLIGRAM
  27. SYNTHROID [Concomitant]
     Active Substance: LEVOTHYROXINE SODIUM
     Dosage: 137 MICROGRAM
  28. ZOFRAN [Concomitant]
     Active Substance: ONDANSETRON HYDROCHLORIDE
     Indication: NAUSEA
     Dosage: 1 TABLET ORAL EVERY 8 HOURS
     Route: 048
     Dates: start: 20191022
  29. LYRICA [Concomitant]
     Active Substance: PREGABALIN
     Dosage: 150 MILLIGRAM, QD
     Route: 048
     Dates: start: 20200105
  30. FERROUS SULFATE. [Concomitant]
     Active Substance: FERROUS SULFATE
     Dosage: 142(45 FE)MG TABLET ER ORAL EVERY OTHER DAY
     Route: 048
  31. CYTOMEL [Concomitant]
     Active Substance: LIOTHYRONINE SODIUM
     Dosage: 5 MICROGRAM
  32. ENABLEX [Concomitant]
     Active Substance: DARIFENACIN HYDROBROMIDE
     Dosage: 15 MILLIGRAM TABLET ER 24 H
  33. NUPLAZID [Suspect]
     Active Substance: PIMAVANSERIN TARTRATE
     Dosage: 34 MG, QD
     Route: 048
  34. PROLIA [Concomitant]
     Active Substance: DENOSUMAB
     Indication: PRODUCT USED FOR UNKNOWN INDICATION
  35. TOPIRAMATE. [Concomitant]
     Active Substance: TOPIRAMATE
     Dosage: 100 MILLIGRAM
  36. REYVOW [Concomitant]
     Active Substance: LASMIDITAN
     Indication: HEADACHE
     Dosage: 200 MILLIGRAM, QD
     Route: 048
     Dates: start: 20200306
  37. REMERON [Concomitant]
     Active Substance: MIRTAZAPINE
     Dosage: ONE AND HALF TABLETS AT BEDIME
     Route: 048
     Dates: start: 20200825
  38. DHE [DEHYDROEMETINE] [Concomitant]
     Active Substance: DEHYDROEMETINE
     Dosage: 4 MILLIGRAM, PRN
  39. DIHYDROERGOTAMINE MESYLATE. [Concomitant]
     Active Substance: DIHYDROERGOTAMINE MESYLATE
     Indication: MIGRAINE
     Dosage: 2.5 MG SUPP 1?2 X/WK, AS NEEDED
  40. NUPLAZID [Suspect]
     Active Substance: PIMAVANSERIN TARTRATE
     Indication: PARKINSON^S DISEASE
     Dosage: 34 MG, QD
     Route: 065
     Dates: start: 201705
  41. NEXIUM [Concomitant]
     Active Substance: ESOMEPRAZOLE MAGNESIUM
     Dosage: 40 MILLIGRAM, QD
     Route: 048
  42. ZANAFLEX [Concomitant]
     Active Substance: TIZANIDINE HYDROCHLORIDE
     Dosage: 4 MILLIGRAM
  43. AIMOVIG [Concomitant]
     Active Substance: ERENUMAB-AOOE
     Dosage: 140 MG/ML AUTOINJECTOR SUBCUTANEOUSLY MONTHLY
     Route: 058
     Dates: start: 20200504
  44. PROMETHAZINE [Concomitant]
     Active Substance: PROMETHAZINE HYDROCHLORIDE
     Dosage: 25 MILLIGRAM, PRN
  45. GLUCOSAMINE CHONDROINATO [Concomitant]
     Dosage: 500 COMPLEX 2 DAILY
     Route: 048
  46. PETADOLEX [Concomitant]
     Active Substance: HERBALS
     Dosage: 75 MILLIGRAM, BID

REACTIONS (8)
  - Weight decreased [Unknown]
  - Gastrointestinal bacterial overgrowth [Unknown]
  - Abdominal discomfort [Unknown]
  - Hypophagia [Unknown]
  - Eye infection [Unknown]
  - Nausea [Unknown]
  - Eye infection [Recovering/Resolving]
  - Fat tissue decreased [Unknown]

NARRATIVE: CASE EVENT DATE: 2017
